FAERS Safety Report 16304934 (Version 1)
Quarter: 2019Q2

REPORT INFORMATION
  Report Type: Spontaneous
  Country: US (occurrence: US)
  Receive Date: 20190513
  Receipt Date: 20190513
  Transmission Date: 20190711
  Serious: Yes (Hospitalization)
  Sender: FDA-Public Use
  Company Number: US-PFIZER INC-2019195052

PATIENT
  Age: 72 Year
  Sex: Male
  Weight: 103 kg

DRUGS (2)
  1. LYRICA [Suspect]
     Active Substance: PREGABALIN
     Indication: DIABETIC NEUROPATHY
     Dosage: 75 MG, UNK
     Route: 048
  2. LYRICA [Suspect]
     Active Substance: PREGABALIN
     Dosage: 100 MG, UNK
     Dates: start: 20190501

REACTIONS (5)
  - Pain [Not Recovered/Not Resolved]
  - Kidney infection [Recovered/Resolved]
  - Hallucination [Recovered/Resolved]
  - Dehydration [Recovered/Resolved with Sequelae]
  - Malaise [Unknown]

NARRATIVE: CASE EVENT DATE: 20190405
